FAERS Safety Report 20813787 (Version 1)
Quarter: 2022Q2

REPORT INFORMATION
  Report Type: Spontaneous
  Country: US (occurrence: US)
  Receive Date: 20220511
  Receipt Date: 20220511
  Transmission Date: 20220721
  Serious: No
  Sender: FDA-Public Use
  Company Number: US-HORIZON THERAPEUTICS-HZN-2022-000697

PATIENT
  Age: 33 Year
  Sex: Female

DRUGS (2)
  1. TEPEZZA [Suspect]
     Active Substance: TEPROTUMUMAB-TRBW
     Indication: Endocrine ophthalmopathy
     Dosage: FIRST INFUSION
     Route: 042
     Dates: start: 202011
  2. TEPEZZA [Suspect]
     Active Substance: TEPROTUMUMAB-TRBW
     Dosage: FINAL INFUSION
     Route: 042
     Dates: start: 202107

REACTIONS (3)
  - Amenorrhoea [Not Recovered/Not Resolved]
  - Drug ineffective [Unknown]
  - Product supply issue [Unknown]

NARRATIVE: CASE EVENT DATE: 20201101
